FAERS Safety Report 18227150 (Version 1)
Quarter: 2020Q3

REPORT INFORMATION
  Report Type: Spontaneous
  Country: US (occurrence: US)
  Receive Date: 20200903
  Receipt Date: 20200903
  Transmission Date: 20201103
  Serious: No
  Sender: FDA-Public Use
  Company Number: US-PFIZER INC-2020340948

PATIENT
  Age: 62 Year
  Sex: Female

DRUGS (1)
  1. METHOTREXATE SODIUM. [Suspect]
     Active Substance: METHOTREXATE SODIUM
     Dosage: UNK

REACTIONS (10)
  - Arthralgia [Not Recovered/Not Resolved]
  - Blood count abnormal [Unknown]
  - Crying [Unknown]
  - Pain [Unknown]
  - Chondromalacia [Unknown]
  - Drug ineffective [Unknown]
  - Arthralgia [Unknown]
  - Condition aggravated [Unknown]
  - Pain in extremity [Not Recovered/Not Resolved]
  - Pain in extremity [Unknown]
